FAERS Safety Report 21436592 (Version 1)
Quarter: 2022Q4

REPORT INFORMATION
  Report Type: Spontaneous
  Country: CN (occurrence: None)
  Receive Date: 20221010
  Receipt Date: 20221010
  Transmission Date: 20230113
  Serious: Yes (Other)
  Sender: FDA-Public Use
  Company Number: 2022A335318

PATIENT
  Age: 46 Year
  Sex: Female

DRUGS (8)
  1. GEFITINIB [Suspect]
     Active Substance: GEFITINIB
     Indication: Lung neoplasm malignant
     Route: 048
     Dates: start: 201606, end: 201801
  2. OSIMERTINIB [Suspect]
     Active Substance: OSIMERTINIB
     Indication: Lung neoplasm malignant
     Route: 048
     Dates: start: 201801, end: 201807
  3. OSIMERTINIB [Suspect]
     Active Substance: OSIMERTINIB
     Indication: Lung neoplasm malignant
     Route: 048
     Dates: start: 20181017
  4. OSIMERTINIB [Suspect]
     Active Substance: OSIMERTINIB
     Indication: Lung neoplasm malignant
     Route: 048
     Dates: start: 2019
  5. VEMURAFENIB [Concomitant]
     Active Substance: VEMURAFENIB
     Indication: Lung neoplasm malignant
     Route: 065
     Dates: start: 201807
  6. VEMURAFENIB [Concomitant]
     Active Substance: VEMURAFENIB
     Indication: Lung neoplasm malignant
     Route: 065
  7. PEMETREXED/CARBOPLATIN [Concomitant]
     Indication: Lung neoplasm malignant
     Dosage: TWO CYCLES
     Route: 065
  8. GEMCITABINE [Concomitant]
     Active Substance: GEMCITABINE
     Indication: Lung neoplasm malignant
     Route: 065
     Dates: start: 2019

REACTIONS (4)
  - Malignant neoplasm progression [Not Recovered/Not Resolved]
  - Drug resistance [Not Recovered/Not Resolved]
  - EGFR gene mutation [Not Recovered/Not Resolved]
  - BRAF V600E mutation positive [Not Recovered/Not Resolved]
